FAERS Safety Report 4636169-3 (Version None)
Quarter: 2005Q2

REPORT INFORMATION
  Report Type: 
  Country: None (occurrence: None)
  Receive Date: 20050413
  Receipt Date: 20050413
  Transmission Date: 20051028
  Serious: Yes (Other)
  Sender: FDA-Public Use
  Company Number: None

PATIENT
  Age: 38 Year
  Sex: Female
  Weight: 90.2658 kg

DRUGS (2)
  1. DEPAKOTE [Suspect]
     Indication: CENTRAL NERVOUS SYSTEM STIMULATION
     Dosage: 3 TABLETS 250 MG , DLY
  2. RISPERDAL [Suspect]
     Indication: SEDATION
     Dosage: 1 TBLT 20 MG, DLY

REACTIONS (5)
  - AMNESIA [None]
  - HYPERTENSION [None]
  - NASAL CONGESTION [None]
  - VISION BLURRED [None]
  - WEIGHT INCREASED [None]
